FAERS Safety Report 10761009 (Version 1)
Quarter: 2015Q1

REPORT INFORMATION
  Report Type: Spontaneous
  Country: US (occurrence: None)
  Receive Date: 20150203
  Receipt Date: 20150203
  Transmission Date: 20150721
  Serious: No
  Sender: FDA-Public Use
  Company Number: None

PATIENT
  Age: 59 Year
  Sex: Male
  Weight: 95.71 kg

DRUGS (3)
  1. OXYMETAZOLINE [Suspect]
     Active Substance: OXYMETAZOLINE
     Indication: HYPERSENSITIVITY
  2. OXYMETAZOLINE [Suspect]
     Active Substance: OXYMETAZOLINE
     Indication: NASOPHARYNGITIS
  3. OXYMETAZOLINE [Suspect]
     Active Substance: OXYMETAZOLINE
     Indication: NASAL DECONGESTION THERAPY

REACTIONS (1)
  - Drug dependence [None]

NARRATIVE: CASE EVENT DATE: 20150202
